FAERS Safety Report 5352432-5 (Version None)
Quarter: 2007Q2

REPORT INFORMATION
  Report Type: 
  Country: None (occurrence: None)
  Receive Date: 20070611
  Receipt Date: 20070606
  Transmission Date: 20071010
  Serious: Yes (Hospitalization)
  Sender: FDA-Public Use
  Company Number: A0654380A

PATIENT
  Age: 76 Year
  Sex: Male

DRUGS (2)
  1. AVANDIA [Suspect]
     Dosage: 6MG PER DAY
     Route: 048
  2. UNSPECIFIED MEDICATIONS [Concomitant]

REACTIONS (1)
  - CARDIAC ASSISTANCE DEVICE USER [None]
